FAERS Safety Report 5409504-6 (Version None)
Quarter: 2007Q3

REPORT INFORMATION
  Report Type: 
  Country: None (occurrence: None)
  Receive Date: 20070807
  Receipt Date: 20070807
  Transmission Date: 20080115
  Serious: Yes (Life-Threatening)
  Sender: FDA-Public Use
  Company Number: None

PATIENT
  Age: 51 Year
  Sex: Female
  Weight: 64.4108 kg

DRUGS (1)
  1. BONIVA [Suspect]
     Indication: OSTEOPOROSIS
     Dosage: 1 PILL 150 MG MONTHLY PO
     Route: 048
     Dates: start: 20070115, end: 20070315

REACTIONS (10)
  - ABDOMINAL DISTENSION [None]
  - ALANINE AMINOTRANSFERASE INCREASED [None]
  - DIVERTICULUM [None]
  - GALLBLADDER ENLARGEMENT [None]
  - GASTROINTESTINAL INFECTION [None]
  - HEPATOMEGALY [None]
  - INFLUENZA [None]
  - PRURITUS [None]
  - STOMACH DISCOMFORT [None]
  - WEIGHT DECREASED [None]
